FAERS Safety Report 6494228-7 (Version None)
Quarter: 2009Q4

REPORT INFORMATION
  Report Type: 
  Country: None (occurrence: None)
  Receive Date: 20091214
  Receipt Date: 20090126
  Transmission Date: 20100525
  Serious: Yes (Other)
  Sender: FDA-Public Use
  Company Number: US-BRISTOL-MYERS SQUIBB COMPANY-14483572

PATIENT
  Age: 6 Decade
  Sex: Female

DRUGS (1)
  1. ABILIFY [Suspect]
     Dosage: TITRATED DOWN TO 2.5MG AND DISCONTINUED

REACTIONS (1)
  - CEREBROVASCULAR ACCIDENT [None]
